FAERS Safety Report 8214758-7 (Version None)
Quarter: 2012Q1

REPORT INFORMATION
  Report Type: 
  Country: None (occurrence: None)
  Receive Date: 20120316
  Receipt Date: 20120305
  Transmission Date: 20120608
  Serious: No
  Sender: FDA-Public Use
  Company Number: US-B.I. PHARMACEUTICALS,INC./RIDGEFIELD-2012-BP-04178BP

PATIENT
  Sex: Female

DRUGS (7)
  1. SPIRIVA [Suspect]
     Indication: CHRONIC OBSTRUCTIVE PULMONARY DISEASE
     Dosage: 18 MCG
     Route: 055
     Dates: start: 20111110
  2. LORAZEPAM [Concomitant]
     Indication: ANXIETY
     Route: 048
  3. TRAZODONE HCL [Concomitant]
     Indication: DEPRESSION
     Route: 048
  4. ASMANEX TWISTHALER [Concomitant]
     Indication: CHRONIC OBSTRUCTIVE PULMONARY DISEASE
     Route: 055
  5. POTASSIUM [Concomitant]
     Indication: SUPPLEMENTATION THERAPY
  6. VITAMIN D [Suspect]
     Indication: VITAMIN D DEFICIENCY
     Route: 048
     Dates: start: 20120116, end: 20120301
  7. SYNTHROID [Concomitant]
     Indication: HYPOTHYROIDISM
     Route: 048

REACTIONS (3)
  - BONE PAIN [None]
  - PRURITUS [None]
  - FORMICATION [None]
